FAERS Safety Report 9847345 (Version 4)
Quarter: 2014Q3

REPORT INFORMATION
  Report Type: Spontaneous
  Country: US (occurrence: US)
  Receive Date: 20140127
  Receipt Date: 20140807
  Transmission Date: 20150326
  Serious: Yes (Other)
  Sender: FDA-Public Use
  Company Number: US-009507513-1401USA009978

PATIENT
  Sex: Male

DRUGS (5)
  1. PROPECIA [Suspect]
     Active Substance: FINASTERIDE
     Indication: ALOPECIA
     Dosage: 1 MG, QD
     Route: 048
     Dates: start: 1998, end: 1999
  2. PROPECIA [Suspect]
     Active Substance: FINASTERIDE
     Dosage: 1 MG, QD
     Route: 048
     Dates: start: 20021226, end: 20111110
  3. FINASTERIDE. [Suspect]
     Active Substance: FINASTERIDE
     Indication: ALOPECIA
     Dosage: 5 MG, UNK
     Route: 048
     Dates: start: 2005, end: 2011
  4. FINASTERIDE. [Suspect]
     Active Substance: FINASTERIDE
     Indication: ALOPECIA
     Dosage: 5 MG, TAKE 1/4 TABLET QD
     Route: 048
     Dates: start: 20061018
  5. PROSCAR [Suspect]
     Active Substance: FINASTERIDE
     Dosage: 5 MG,1/4 TABLET DAILY
     Route: 048
     Dates: start: 20060425, end: 20061005

REACTIONS (20)
  - Ankle fracture [Unknown]
  - Sexual dysfunction [Not Recovered/Not Resolved]
  - Erectile dysfunction [Unknown]
  - Genital atrophy [Unknown]
  - Varicose vein [Unknown]
  - Internal fixation of fracture [Unknown]
  - Ligament sprain [Unknown]
  - Wrong technique in drug usage process [Unknown]
  - Depression [Unknown]
  - Scrotal mass [Unknown]
  - Seasonal allergy [Unknown]
  - Anorgasmia [Unknown]
  - Loss of libido [Unknown]
  - Blood testosterone decreased [Not Recovered/Not Resolved]
  - Asthenia [Unknown]
  - Attention deficit/hyperactivity disorder [Unknown]
  - Hypogonadism male [Unknown]
  - Anxiety [Unknown]
  - Fatigue [Unknown]
  - Wrong technique in drug usage process [Unknown]

NARRATIVE: CASE EVENT DATE: 1999
